FAERS Safety Report 8034106-5 (Version None)
Quarter: 2012Q1

REPORT INFORMATION
  Report Type: 
  Country: None (occurrence: None)
  Receive Date: 20120110
  Receipt Date: 20120104
  Transmission Date: 20120608
  Serious: Yes (Other)
  Sender: FDA-Public Use
  Company Number: US-ASTRAZENECA-2011SE72538

PATIENT
  Age: 33 Year
  Sex: Female

DRUGS (12)
  1. SEROQUEL [Suspect]
     Route: 048
     Dates: start: 20110714
  2. WELLBUTRIN XL [Suspect]
     Indication: AFFECTIVE DISORDER
     Route: 065
     Dates: start: 20110714
  3. SEROQUEL [Suspect]
     Indication: AFFECTIVE DISORDER
     Route: 048
     Dates: start: 20110606, end: 20110608
  4. SEROQUEL [Suspect]
     Route: 048
     Dates: start: 20110627, end: 20110714
  5. SEROQUEL [Suspect]
     Route: 048
     Dates: start: 20110714
  6. SEROQUEL [Suspect]
     Indication: INSOMNIA
     Route: 048
     Dates: start: 20110606, end: 20110608
  7. SEROQUEL [Suspect]
     Route: 048
     Dates: start: 20110610, end: 20110627
  8. WELLBUTRIN XL [Suspect]
     Indication: DEPRESSION
     Route: 065
     Dates: start: 20110714
  9. SEROQUEL [Suspect]
     Route: 048
     Dates: start: 20110627, end: 20110714
  10. SEROQUEL [Suspect]
     Route: 048
     Dates: start: 20110607, end: 20110609
  11. SEROQUEL [Suspect]
     Route: 048
     Dates: start: 20110610, end: 20110627
  12. SEROQUEL [Suspect]
     Route: 048
     Dates: start: 20110607, end: 20110609

REACTIONS (3)
  - OFF LABEL USE [None]
  - MATERNAL EXPOSURE DURING PREGNANCY [None]
  - ACQUIRED IMMUNODEFICIENCY SYNDROME [None]
